FAERS Safety Report 4821921-1 (Version None)
Quarter: 2005Q4

REPORT INFORMATION
  Report Type: 
  Country: None (occurrence: None)
  Receive Date: 20051107
  Receipt Date: 20051011
  Transmission Date: 20060501
  Serious: Yes (Death)
  Sender: FDA-Public Use
  Company Number: IL-NOVOPROD-247687

PATIENT
  Age: 9 Day
  Sex: Male
  Weight: 4 kg

DRUGS (2)
  1. NOVOSEVEN [Suspect]
     Indication: POST PROCEDURAL HAEMORRHAGE
     Dosage: 1.2 MG, SINGLE
  2. APROTININ [Suspect]
     Dosage: 50000 IU, UNK
     Route: 042
     Dates: start: 20051002, end: 20051003

REACTIONS (1)
  - PULMONARY HAEMORRHAGE [None]
